FAERS Safety Report 5679191-0 (Version None)
Quarter: 2008Q1

REPORT INFORMATION
  Report Type: 
  Country: None (occurrence: None)
  Receive Date: 20080321
  Receipt Date: 20080220
  Transmission Date: 20080703
  Serious: Yes (Hospitalization)
  Sender: FDA-Public Use
  Company Number: 2008S1002901

PATIENT
  Age: 28 Year
  Sex: Female

DRUGS (2)
  1. BACLOFEN [Suspect]
     Dosage: 800 MG; ONCE; ORAL
     Route: 048
  2. TEMAZEPAM [Suspect]
     Dosage: ORAL
     Route: 048

REACTIONS (6)
  - BRADYCARDIA [None]
  - COMA [None]
  - DELIRIUM [None]
  - HYPERTENSION [None]
  - OVERDOSE [None]
  - TACHYCARDIA [None]
